FAERS Safety Report 4806918-X (Version None)
Quarter: 2005Q4

REPORT INFORMATION
  Report Type: 
  Country: None (occurrence: None)
  Receive Date: 20051019
  Receipt Date: 20051014
  Transmission Date: 20060501
  Serious: Yes (Death)
  Sender: FDA-Public Use
  Company Number: 2005-02131

PATIENT
  Age: 61 Year

DRUGS (11)
  1. VELCADE [Suspect]
     Indication: MULTIPLE MYELOMA
     Dosage: INTRAVENOUS
     Route: 042
  2. ADRIAMYCIN PFS [Suspect]
     Indication: MULTIPLE MYELOMA
  3. DEXAMETHASONE [Suspect]
     Indication: MULTIPLE MYELOMA
  4. PANTOPRAZOLE SODIUM [Concomitant]
  5. AMPHOTERICIN B [Concomitant]
  6. CIPROFLOXACIN [Concomitant]
  7. METOPROLOL TARTRATE [Concomitant]
  8. AMLODIPINE [Concomitant]
  9. FUROSEMIDE [Concomitant]
  10. ZOLEDRONATE (ZOLEDRONIC ACID) [Concomitant]
  11. ENOXAPARIN SODIUM [Concomitant]

REACTIONS (8)
  - ABDOMINAL PAIN [None]
  - C-REACTIVE PROTEIN INCREASED [None]
  - DEHYDRATION [None]
  - DIARRHOEA [None]
  - LEUKOPENIA [None]
  - PNEUMONIA [None]
  - RENAL FAILURE [None]
  - SEPSIS [None]
